FAERS Safety Report 21164545 (Version 1)
Quarter: 2022Q3

REPORT INFORMATION
  Report Type: Report from Study
  Country: CA (occurrence: CA)
  Receive Date: 20220803
  Receipt Date: 20220803
  Transmission Date: 20221026
  Serious: Yes (Other)
  Sender: FDA-Public Use
  Company Number: CA-JNJFOC-20220446493

PATIENT
  Age: 78 Year
  Sex: Male

DRUGS (2)
  1. ERLEADA [Suspect]
     Active Substance: APALUTAMIDE
     Indication: Hormone-dependent prostate cancer
     Dosage: 4*60 MG
     Route: 048
     Dates: start: 20211021, end: 20220716
  2. ERLEADA [Suspect]
     Active Substance: APALUTAMIDE
     Dosage: 4*60 MG
     Route: 048
     Dates: start: 20211021, end: 20220716

REACTIONS (6)
  - Spinal fracture [Unknown]
  - Osteoporosis [Not Recovered/Not Resolved]
  - Hormone level abnormal [Unknown]
  - Fatigue [Not Recovered/Not Resolved]
  - Flushing [Not Recovered/Not Resolved]
  - Balance disorder [Not Recovered/Not Resolved]

NARRATIVE: CASE EVENT DATE: 20220422
